FAERS Safety Report 5131195-2 (Version None)
Quarter: 2006Q4

REPORT INFORMATION
  Report Type: 
  Country: None (occurrence: None)
  Receive Date: 20061016
  Receipt Date: 20060929
  Transmission Date: 20070319
  Serious: Yes (Other)
  Sender: FDA-Public Use
  Company Number: US-2006-029610

PATIENT

DRUGS (1)
  1. BETASERON [Suspect]
     Indication: MULTIPLE SCLEROSIS
     Dates: start: 20060326

REACTIONS (2)
  - DNA ANTIBODY POSITIVE [None]
  - GAMMA-GLUTAMYLTRANSFERASE INCREASED [None]
